FAERS Safety Report 5114534-8 (Version None)
Quarter: 2006Q3

REPORT INFORMATION
  Report Type: 
  Country: None (occurrence: None)
  Receive Date: 20060922
  Receipt Date: 20060922
  Transmission Date: 20061208
  Serious: Yes (Hospitalization)
  Sender: FDA-Public Use
  Company Number: None

PATIENT
  Age: 58 Year
  Sex: Male
  Weight: 106.1417 kg

DRUGS (4)
  1. RITUXAN [Suspect]
     Dosage: 750 MG    IV
     Route: 042
     Dates: start: 20060912, end: 20060912
  2. ALLOPURINOL [Concomitant]
  3. FUROSEMIDE [Concomitant]
  4. DARBOPOETIN ALFA [Concomitant]

REACTIONS (9)
  - ADVERSE DRUG REACTION [None]
  - CYTOKINE RELEASE SYNDROME [None]
  - DIARRHOEA [None]
  - FATIGUE [None]
  - HYPERSOMNIA [None]
  - HYPOGAMMAGLOBULINAEMIA [None]
  - LYMPHADENOPATHY [None]
  - PNEUMONIA [None]
  - SPLENOMEGALY [None]
